FAERS Safety Report 17903315 (Version 1)
Quarter: 2020Q2

REPORT INFORMATION
  Report Type: Spontaneous
  Country: US (occurrence: US)
  Receive Date: 20200617
  Receipt Date: 20200617
  Transmission Date: 20200714
  Serious: Yes (Hospitalization)
  Sender: FDA-Public Use
  Company Number: US-ROCHE-2623145

PATIENT
  Sex: Female

DRUGS (32)
  1. AZELASTINE. [Concomitant]
     Active Substance: AZELASTINE HYDROCHLORIDE
  2. BENZONATATE. [Concomitant]
     Active Substance: BENZONATATE
  3. DIGOXIN. [Concomitant]
     Active Substance: DIGOXIN
  4. MATZIM LA [Concomitant]
     Active Substance: DILTIAZEM HYDROCHLORIDE
  5. METRONIDAZOLE. [Concomitant]
     Active Substance: METRONIDAZOLE
  6. TRIAMCINOLONE [Concomitant]
     Active Substance: TRIAMCINOLONE
  7. ESBRIET [Suspect]
     Active Substance: PIRFENIDONE
     Indication: IDIOPATHIC PULMONARY FIBROSIS
     Route: 058
     Dates: start: 20181006
  8. AZELASTINE;FLUTICASONE [Concomitant]
  9. OMEPRAZOLE. [Concomitant]
     Active Substance: OMEPRAZOLE
  10. PONARIS [EUCALYPTUS GLOBULUS OIL;GOSSYPIUM SPP. SEED OIL;MELALEUCA LEU [Concomitant]
  11. AZELAIC ACID. [Concomitant]
     Active Substance: AZELAIC ACID
  12. BUMETANIDE. [Concomitant]
     Active Substance: BUMETANIDE
  13. CYCLOBENZAPRINE. [Concomitant]
     Active Substance: CYCLOBENZAPRINE
  14. DOXYCYCLINE HYDROCHLORIDE [Concomitant]
     Active Substance: DOXYCYCLINE HYDROCHLORIDE
  15. LOSARTAN POTASSIUM. [Concomitant]
     Active Substance: LOSARTAN POTASSIUM
  16. LUMIGAN [Concomitant]
     Active Substance: BIMATOPROST
  17. ONDANSETRON [Concomitant]
     Active Substance: ONDANSETRON
  18. BUSPIRONE [Concomitant]
     Active Substance: BUSPIRONE HYDROCHLORIDE
  19. CYANOCOBALAMIN. [Concomitant]
     Active Substance: CYANOCOBALAMIN
  20. DILTIAZEM. [Concomitant]
     Active Substance: DILTIAZEM
  21. DYMISTA [Concomitant]
     Active Substance: AZELASTINE HYDROCHLORIDE\FLUTICASONE PROPIONATE
  22. ELIQUIS [Concomitant]
     Active Substance: APIXABAN
  23. PROBIOTICS NOS [Concomitant]
     Active Substance: PROBIOTICS NOS
  24. KLOR-CON M10 [Concomitant]
     Active Substance: POTASSIUM CHLORIDE
  25. MAG OXIDE [Concomitant]
     Active Substance: MAGNESIUM OXIDE
  26. FLUCONAZOLE. [Concomitant]
     Active Substance: FLUCONAZOLE
  27. NITROGLYCERIN. [Concomitant]
     Active Substance: NITROGLYCERIN
  28. ROPINIROLE. [Concomitant]
     Active Substance: ROPINIROLE
  29. METOPROLOLTARTRAT [Concomitant]
  30. POTASSIUM CHLORIDE. [Concomitant]
     Active Substance: POTASSIUM CHLORIDE
  31. ROSUVASTATIN. [Concomitant]
     Active Substance: ROSUVASTATIN
  32. URSODIOL. [Concomitant]
     Active Substance: URSODIOL

REACTIONS (2)
  - Product dose omission [Unknown]
  - Cholelithiasis [Unknown]
